FAERS Safety Report 6378863-2 (Version None)
Quarter: 2009Q3

REPORT INFORMATION
  Report Type: 
  Country: None (occurrence: None)
  Receive Date: 20090928
  Receipt Date: 20090922
  Transmission Date: 20100115
  Serious: Yes (Death, Life-Threatening, Other)
  Sender: FDA-Public Use
  Company Number: US-ROXANE LABORATORIES, INC.-2009-RO-00970RO

PATIENT
  Age: 33 Year
  Sex: Female
  Weight: 103 kg

DRUGS (4)
  1. MEPERIDINE HCL [Suspect]
  2. DIAZEPAM [Suspect]
  3. LIDOCAINE [Suspect]
     Indication: NERVE BLOCK
  4. KETAMINE HCL [Suspect]

REACTIONS (6)
  - ARACHNOID CYST [None]
  - CARDIAC ARREST [None]
  - HAEMORRHAGE [None]
  - PERITONEAL HAEMORRHAGE [None]
  - SHOCK [None]
  - UTERINE RUPTURE [None]
